FAERS Safety Report 13618364 (Version 1)
Quarter: 2017Q2

REPORT INFORMATION
  Report Type: Spontaneous
  Country: US (occurrence: US)
  Receive Date: 20170606
  Receipt Date: 20170606
  Transmission Date: 20170830
  Serious: No
  Sender: FDA-Public Use
  Company Number: US-JNJFOC-20170522007

PATIENT
  Age: 74 Year
  Sex: Female
  Weight: 104.33 kg

DRUGS (2)
  1. IMODIUM MULTI-SYMPTOM RELIEF [Suspect]
     Active Substance: DIMETHICONE\LOPERAMIDE HYDROCHLORIDE
     Indication: ANTIDIARRHOEAL SUPPORTIVE CARE
     Dosage: 2 CAPLETS, THEN 1, THEN SWITCHED TO TWO EVERY EVENING (3RD DAY TOOK 2 AT BEDTIME) FOR LAST 10 DAYS
     Route: 048
  2. IMODIUM MULTI-SYMPTOM RELIEF [Suspect]
     Active Substance: DIMETHICONE\LOPERAMIDE HYDROCHLORIDE
     Indication: DIARRHOEA
     Dosage: 2 CAPLETS, THEN 1, THEN SWITCHED TO TWO EVERY EVENING (3RD DAY TOOK 2 AT BEDTIME) FOR LAST 10 DAYS
     Route: 048

REACTIONS (1)
  - Incorrect drug administration duration [Unknown]
